FAERS Safety Report 7904583-6 (Version None)
Quarter: 2011Q4

REPORT INFORMATION
  Report Type: 
  Country: None (occurrence: None)
  Receive Date: 20111109
  Receipt Date: 20111028
  Transmission Date: 20120403
  Serious: Yes (Hospitalization, Congenital Anomaly)
  Sender: FDA-Public Use
  Company Number: US-GLAXOSMITHKLINE-A0878192A

PATIENT
  Sex: Male
  Weight: 3 kg

DRUGS (1)
  1. PAROXETINE HCL [Suspect]
     Indication: PRODUCT USED FOR UNKNOWN INDICATION
     Route: 064
     Dates: start: 20040401

REACTIONS (24)
  - VOMITING [None]
  - RENAL IMPAIRMENT [None]
  - ABNORMAL BEHAVIOUR [None]
  - FEEDING DISORDER [None]
  - IRRITABILITY [None]
  - CONGENITAL HYDROCEPHALUS [None]
  - CONGENITAL HYDRONEPHROSIS [None]
  - FOETAL EXPOSURE DURING PREGNANCY [None]
  - INTRAVENTRICULAR HAEMORRHAGE [None]
  - GASTROOESOPHAGEAL REFLUX DISEASE [None]
  - CONGENITAL CYSTIC KIDNEY DISEASE [None]
  - DEVELOPMENTAL DELAY [None]
  - HYPOPHAGIA [None]
  - SUBDURAL HAEMATOMA [None]
  - PREMATURE BABY [None]
  - FOETAL GROWTH RESTRICTION [None]
  - PILONIDAL CYST CONGENITAL [None]
  - FINE MOTOR DELAY [None]
  - DANDY-WALKER SYNDROME [None]
  - RENAL DYSPLASIA [None]
  - ENCEPHALOPATHY [None]
  - FONTANELLE BULGING [None]
  - OPHTHALMOPLEGIA [None]
  - CEREBRAL HAEMANGIOMA [None]
